FAERS Safety Report 6599152-7 (Version None)
Quarter: 2010Q1

REPORT INFORMATION
  Report Type: 
  Country: None (occurrence: None)
  Receive Date: 20100224
  Receipt Date: 20100217
  Transmission Date: 20100710
  Serious: Yes (Other)
  Sender: FDA-Public Use
  Company Number: US-BRISTOL-MYERS SQUIBB COMPANY-14981716

PATIENT
  Sex: Male

DRUGS (1)
  1. BUSPAR [Suspect]

REACTIONS (1)
  - BLOOD GLUCOSE INCREASED [None]
